FAERS Safety Report 5645080-0 (Version None)
Quarter: 2008Q1

REPORT INFORMATION
  Report Type: 
  Country: None (occurrence: None)
  Receive Date: 20080229
  Receipt Date: 20080222
  Transmission Date: 20080703
  Serious: Yes (Hospitalization)
  Sender: FDA-Public Use
  Company Number: IT-BAYER-200813850GPV

PATIENT
  Age: 75 Year
  Sex: Male

DRUGS (7)
  1. ACETYLSALICYLIC ACID SRT [Suspect]
     Indication: CAROTID ARTERY STENOSIS
     Dosage: TOTAL DAILY DOSE: 100 MG  UNIT DOSE: 100 MG
     Route: 048
     Dates: start: 20080124, end: 20080204
  2. NIMESULID [Suspect]
     Indication: BACK PAIN
     Route: 048
     Dates: start: 20070101, end: 20080204
  3. FOSIPRES (FOSINOPRIL) [Concomitant]
     Indication: DRUG USE FOR UNKNOWN INDICATION
     Route: 048
  4. ALLOPURINOL [Concomitant]
     Indication: DRUG USE FOR UNKNOWN INDICATION
     Dosage: TOTAL DAILY DOSE: 150 MG
     Route: 048
  5. PRADIF (TAMUSOLINE) [Concomitant]
     Indication: DRUG USE FOR UNKNOWN INDICATION
     Dosage: TOTAL DAILY DOSE: 0.4 MG
     Route: 048
  6. PROSCAR [Concomitant]
     Indication: DRUG USE FOR UNKNOWN INDICATION
     Route: 048
  7. HUMULIN (HUMAN INSULIN) [Concomitant]
     Indication: DIABETES MELLITUS
     Route: 058

REACTIONS (3)
  - ANAEMIA [None]
  - GASTRIC MUCOSAL LESION [None]
  - MELAENA [None]
